FAERS Safety Report 9432514 (Version 6)
Quarter: 2014Q3

REPORT INFORMATION
  Report Type: Report from Study
  Country: JP (occurrence: JP)
  Receive Date: 20130731
  Receipt Date: 20140717
  Transmission Date: 20150326
  Serious: Yes (Other)
  Sender: FDA-Public Use
  Company Number: JP-NOVOPROD-384108

PATIENT
  Age: 39 Year
  Sex: Female
  Weight: 66 kg

DRUGS (5)
  1. NORDITROPIN [Suspect]
     Active Substance: SOMATROPIN
     Indication: GROWTH HORMONE DEFICIENCY
     Dosage: 0.2 MG, QD
     Route: 058
     Dates: start: 20100708
  2. CLOMID [Concomitant]
     Active Substance: CLOMIPHENE CITRATE
     Indication: AMENORRHOEA
     Dosage: 50 MG, QD
     Route: 048
     Dates: end: 20110213
  3. DUPHASTON [Concomitant]
     Active Substance: DYDROGESTERONE
     Indication: AMENORRHOEA
     Dosage: 10 MG, QD
     Route: 048
     Dates: start: 20110214
  4. NORDITROPIN [Suspect]
     Active Substance: SOMATROPIN
     Dosage: 0.4 MG, QD
     Route: 058
     Dates: start: 20101014, end: 20140123
  5. NORDITROPIN [Suspect]
     Active Substance: SOMATROPIN
     Dosage: 0.3 MG, QD
     Route: 058
     Dates: start: 20100812

REACTIONS (2)
  - Pituitary tumour [Recovering/Resolving]
  - Neoplasm [Recovering/Resolving]

NARRATIVE: CASE EVENT DATE: 20120628
